FAERS Safety Report 14496658 (Version 2)
Quarter: 2018Q1

REPORT INFORMATION
  Report Type: Report from Study
  Country: LB (occurrence: LB)
  Receive Date: 20180207
  Receipt Date: 20180306
  Transmission Date: 20180509
  Serious: Yes (Life-Threatening, Hospitalization)
  Sender: FDA-Public Use
  Company Number: PHHY2018LB019245

PATIENT
  Sex: Female

DRUGS (3)
  1. ENTRESTO [Suspect]
     Active Substance: SACUBITRIL\VALSARTAN
     Dosage: 100 MG, QD
     Route: 048
     Dates: start: 20170117, end: 201712
  2. ENTRESTO [Suspect]
     Active Substance: SACUBITRIL\VALSARTAN
     Indication: PRODUCT USED FOR UNKNOWN INDICATION
     Dosage: 50 MG, BID
     Route: 048
     Dates: start: 20160806, end: 20170110
  3. ENTRESTO [Suspect]
     Active Substance: SACUBITRIL\VALSARTAN
     Dosage: 0.5 DF, BID
     Route: 048
     Dates: start: 20170111

REACTIONS (3)
  - Wrong technique in product usage process [Unknown]
  - Pulmonary oedema [Unknown]
  - Inappropriate schedule of drug administration [Unknown]
